FAERS Safety Report 12911624 (Version 1)
Quarter: 2016Q4

REPORT INFORMATION
  Report Type: Spontaneous
  Country: US (occurrence: US)
  Receive Date: 20161104
  Receipt Date: 20161104
  Transmission Date: 20170207
  Serious: Yes (Hospitalization, Other)
  Sender: FDA-Public Use
  Company Number: PHEH2016US028301

PATIENT
  Sex: Male

DRUGS (1)
  1. TASIGNA [Suspect]
     Active Substance: NILOTINIB
     Indication: CHRONIC MYELOID LEUKAEMIA
     Dosage: UNK UNK, BID
     Route: 048

REACTIONS (4)
  - Platelet count decreased [Recovered/Resolved]
  - Syncope [Recovering/Resolving]
  - Ventricular tachycardia [Recovering/Resolving]
  - Pancytopenia [Unknown]

NARRATIVE: CASE EVENT DATE: 20161027
